FAERS Safety Report 18227995 (Version 1)
Quarter: 2020Q3

REPORT INFORMATION
  Report Type: Spontaneous
  Country: FR (occurrence: FR)
  Receive Date: 20200903
  Receipt Date: 20200903
  Transmission Date: 20201103
  Serious: Yes (Other)
  Sender: FDA-Public Use
  Company Number: FR-AMGEN-FRASP2020139541

PATIENT
  Age: 72 Year
  Sex: Female
  Weight: 100 kg

DRUGS (1)
  1. PROLIA [Suspect]
     Active Substance: DENOSUMAB
     Indication: OSTEOPOROSIS
     Dosage: 60 MILLIGRAM, Q6MO
     Route: 058
     Dates: start: 202004, end: 202004

REACTIONS (1)
  - Urticarial vasculitis [Recovering/Resolving]

NARRATIVE: CASE EVENT DATE: 202004
